FAERS Safety Report 9931715 (Version 1)
Quarter: 2014Q1

REPORT INFORMATION
  Report Type: Spontaneous
  Country: US (occurrence: US)
  Receive Date: 20140228
  Receipt Date: 20140228
  Transmission Date: 20141002
  Serious: Yes (Death)
  Sender: FDA-Public Use
  Company Number: US-JNJFOC-20140213631

PATIENT
  Sex: Male
  Weight: 55.79 kg

DRUGS (4)
  1. SANDOZ FENTANYL TRANSDERMAL SYSTEM [Suspect]
     Indication: CANCER PAIN
     Route: 062
     Dates: start: 201311, end: 2013
  2. SANDOZ FENTANYL TRANSDERMAL SYSTEM [Suspect]
     Indication: CANCER PAIN
     Route: 062
     Dates: start: 2014
  3. SANDOZ FENTANYL TRANSDERMAL SYSTEM [Suspect]
     Indication: CANCER PAIN
     Dosage: TWO 25 MCG PATCHES
     Route: 062
     Dates: start: 2013, end: 2014
  4. OXYCODONE [Concomitant]
     Indication: CANCER PAIN
     Route: 048
     Dates: start: 201311

REACTIONS (2)
  - Lung neoplasm malignant [Fatal]
  - Cancer pain [Recovered/Resolved]
